FAERS Safety Report 13653780 (Version 2)
Quarter: 2017Q3

REPORT INFORMATION
  Report Type: Spontaneous
  Country: US (occurrence: US)
  Receive Date: 20170614
  Receipt Date: 20170719
  Transmission Date: 20171127
  Serious: Yes (Hospitalization)
  Sender: FDA-Public Use
  Company Number: US-NOVOPROD-549051

PATIENT
  Age: 24 Year
  Sex: Female
  Weight: 77 kg

DRUGS (3)
  1. LEVEMIR [Suspect]
     Active Substance: INSULIN DETEMIR
     Indication: TYPE 1 DIABETES MELLITUS
     Dosage: 24 U, QD
     Route: 058
     Dates: start: 201612
  2. LEVEMIR [Suspect]
     Active Substance: INSULIN DETEMIR
     Dosage: 32 U, QD
     Route: 058
     Dates: start: 201612
  3. NOVOLOG [Concomitant]
     Active Substance: INSULIN ASPART
     Indication: TYPE 1 DIABETES MELLITUS
     Dosage: SLIDING SCALE
     Route: 065

REACTIONS (5)
  - Incorrect dose administered by device [Unknown]
  - Exposure during pregnancy [Unknown]
  - Diabetic ketoacidosis [Recovered/Resolved]
  - Device malfunction [Unknown]
  - Diabetic ketoacidosis [Recovered/Resolved]

NARRATIVE: CASE EVENT DATE: 201612
